FAERS Safety Report 9017643 (Version 2)
Quarter: 2013Q1

REPORT INFORMATION
  Report Type: Spontaneous
  Country: US (occurrence: US)
  Receive Date: 20130117
  Receipt Date: 20130208
  Transmission Date: 20140127
  Serious: Yes (Other)
  Sender: FDA-Public Use
  Company Number: US-FRI-1000041649

PATIENT
  Age: 49 Year
  Sex: Male
  Weight: 71 kg

DRUGS (2)
  1. VIIBRYD [Suspect]
     Indication: DEPRESSION
     Dosage: 10 MG
     Route: 048
     Dates: start: 20121103, end: 20121109
  2. DIAZEPAM [Concomitant]
     Indication: ANXIETY
     Dosage: 5 MG

REACTIONS (2)
  - Stevens-Johnson syndrome [Recovered/Resolved]
  - Dyspnoea [Recovered/Resolved]
